FAERS Safety Report 11311202 (Version 3)
Quarter: 2016Q2

REPORT INFORMATION
  Report Type: Report from Study
  Country: US (occurrence: US)
  Receive Date: 20150727
  Receipt Date: 20160622
  Transmission Date: 20160815
  Serious: Yes (Hospitalization, Other)
  Sender: FDA-Public Use
  Company Number: US-AMGEN-USASL2015055775

PATIENT
  Age: 69 Year
  Sex: Male

DRUGS (9)
  1. OMPRAZOLE [Concomitant]
     Active Substance: OMEPRAZOLE
     Dosage: UNK
  2. DAPSONE. [Concomitant]
     Active Substance: DAPSONE
     Dosage: UNK
  3. KYPROLIS [Suspect]
     Active Substance: CARFILZOMIB
     Indication: PLASMA CELL MYELOMA
     Dosage: UNK, TWICE A WEEK
     Route: 042
     Dates: start: 20150527, end: 20150707
  4. DEXAMETHASONE. [Concomitant]
     Active Substance: DEXAMETHASONE
     Dosage: 20 MG, DAILY
  5. FLUCONAZOLE. [Concomitant]
     Active Substance: FLUCONAZOLE
     Indication: PROPHYLAXIS
     Dosage: UNK
  6. POMALYST [Concomitant]
     Active Substance: POMALIDOMIDE
     Indication: PLASMA CELL MYELOMA
     Dosage: UNK
  7. ACYCLOVIR                          /00587301/ [Concomitant]
     Active Substance: ACYCLOVIR
     Indication: PROPHYLAXIS
     Dosage: UNK
  8. POTASSIUM [Concomitant]
     Active Substance: POTASSIUM
     Indication: BLOOD POTASSIUM DECREASED
     Dosage: UNK UNK, BID
     Route: 042
  9. MAGNESIUM [Concomitant]
     Active Substance: MAGNESIUM
     Dosage: UNK, DAILY

REACTIONS (23)
  - Sepsis [Unknown]
  - Atrial fibrillation [Unknown]
  - Light chain disease [Unknown]
  - Vomiting [Unknown]
  - White blood cell count decreased [Unknown]
  - Colitis [Unknown]
  - Feeding disorder [Unknown]
  - Confusional state [Unknown]
  - Feeling abnormal [Unknown]
  - Blood uric acid increased [Unknown]
  - Vitamin B complex deficiency [Unknown]
  - Nausea [Unknown]
  - Ammonia increased [Unknown]
  - Blood potassium decreased [Unknown]
  - Gastrooesophageal reflux disease [Unknown]
  - Haemoglobin decreased [Unknown]
  - Diarrhoea [Unknown]
  - Stomatitis [Unknown]
  - Cell marker decreased [Unknown]
  - Plasma cell myeloma [Not Recovered/Not Resolved]
  - Platelet count decreased [Unknown]
  - Blood creatinine abnormal [Unknown]
  - Fungal infection [Unknown]

NARRATIVE: CASE EVENT DATE: 2015
